FAERS Safety Report 11780676 (Version 2)
Quarter: 2016Q1

REPORT INFORMATION
  Report Type: Spontaneous
  Country: IT (occurrence: IT)
  Receive Date: 20151126
  Receipt Date: 20160104
  Transmission Date: 20160525
  Serious: Yes (Hospitalization)
  Sender: FDA-Public Use
  Company Number: IT-HOSPIRA-3089207

PATIENT
  Age: 55 Year
  Sex: Female
  Weight: 80 kg

DRUGS (8)
  1. UGUROL [Suspect]
     Active Substance: TRANEXAMIC ACID
     Indication: PRODUCT USED FOR UNKNOWN INDICATION
     Dates: start: 20151012, end: 20151012
  2. PROPOFOL. [Suspect]
     Active Substance: PROPOFOL
     Indication: GENERAL ANAESTHESIA
     Dates: start: 20151012, end: 20151012
  3. PROPOFOL. [Suspect]
     Active Substance: PROPOFOL
     Indication: GENERAL ANAESTHESIA
     Route: 041
     Dates: start: 20151012, end: 20151012
  4. CISATRACURIUM BESILATE [Suspect]
     Active Substance: CISATRACURIUM BESYLATE
     Indication: GENERAL ANAESTHESIA
     Dosage: 25 MG/H
     Route: 041
     Dates: start: 20151012, end: 20151012
  5. CEFAMEZIN                          /00288502/ [Suspect]
     Active Substance: CEFAZOLIN
     Indication: ANTIBIOTIC PROPHYLAXIS
     Dates: start: 20151012, end: 20151012
  6. FENTANYL. [Suspect]
     Active Substance: FENTANYL
     Indication: GENERAL ANAESTHESIA
     Dosage: 250 GR
     Dates: start: 20151012, end: 20151012
  7. UGUROL [Suspect]
     Active Substance: TRANEXAMIC ACID
     Indication: PRODUCT USED FOR UNKNOWN INDICATION
     Dosage: 250 MG/HR
     Route: 041
     Dates: start: 20151012, end: 20151012
  8. CISATRACURIUM BESILATE [Suspect]
     Active Substance: CISATRACURIUM BESYLATE
     Indication: GENERAL ANAESTHESIA
     Dosage: 25 MG/H
     Route: 041
     Dates: start: 20151012, end: 20151012

REACTIONS (3)
  - Blood pressure decreased [Recovered/Resolved]
  - Drug interaction [Unknown]
  - Vasodilatation [Recovered/Resolved]

NARRATIVE: CASE EVENT DATE: 20151012
